FAERS Safety Report 8591476-7 (Version None)
Quarter: 2012Q3

REPORT INFORMATION
  Report Type: 
  Country: None (occurrence: None)
  Receive Date: 20120803
  Receipt Date: 20120803
  Transmission Date: 20120928
  Serious: Yes (Hospitalization)
  Sender: FDA-Public Use
  Company Number: None

PATIENT
  Age: 66 Year
  Sex: Male
  Weight: 99.4 kg

DRUGS (2)
  1. OXYCODONE HCL [Suspect]
     Indication: PAIN
     Dosage: 30 MG OTHER PO
     Route: 048
     Dates: start: 20051122, end: 20120626
  2. FENTANYL [Suspect]
     Indication: PAIN
     Dosage: 25 MCG PER HOUR TOP
     Route: 061
     Dates: start: 20090407, end: 20120626

REACTIONS (3)
  - MENTAL STATUS CHANGES [None]
  - HYPOTENSION [None]
  - PNEUMONIA [None]
